FAERS Safety Report 10467577 (Version 3)
Quarter: 2015Q4

REPORT INFORMATION
  Report Type: Spontaneous
  Country: US (occurrence: US)
  Receive Date: 20140922
  Receipt Date: 20151104
  Transmission Date: 20160304
  Serious: Yes (Hospitalization, Other)
  Sender: FDA-Public Use
  Company Number: US-BAYER-2014-140746

PATIENT
  Age: 36 Year
  Sex: Female
  Weight: 77 kg

DRUGS (2)
  1. ZOLOFT [Concomitant]
     Active Substance: SERTRALINE HYDROCHLORIDE
  2. MIRENA [Suspect]
     Active Substance: LEVONORGESTREL
     Indication: CONTRACEPTION
     Dosage: 20 MCG/24HR, CONT
     Route: 015
     Dates: start: 20110818, end: 20120916

REACTIONS (20)
  - Uterine perforation [None]
  - Intervertebral disc protrusion [None]
  - General physical health deterioration [None]
  - Back pain [None]
  - Paralysis [None]
  - Medical device discomfort [None]
  - Abdominal pain [None]
  - Abasia [None]
  - Fear [None]
  - Intervertebral disc injury [None]
  - Pelvic pain [None]
  - Injury [None]
  - Anxiety [None]
  - Genital haemorrhage [None]
  - Depressed mood [None]
  - Mobility decreased [None]
  - Emotional distress [None]
  - Internal injury [None]
  - Depression [None]
  - Device issue [None]

NARRATIVE: CASE EVENT DATE: 2012
